FAERS Safety Report 9880576 (Version 2)
Quarter: 2014Q1

REPORT INFORMATION
  Report Type: Spontaneous
  Country: US (occurrence: US)
  Receive Date: 20140207
  Receipt Date: 20140225
  Transmission Date: 20141002
  Serious: Yes (Other)
  Sender: FDA-Public Use
  Company Number: US-009507513-1402USA001038

PATIENT
  Age: 81 Year
  Sex: Female

DRUGS (1)
  1. ASMANEX TWISTHALER [Suspect]
     Dosage: 2 PUFF BID
     Route: 055
     Dates: start: 20140117

REACTIONS (4)
  - Cataract operation [Unknown]
  - Cataract [Unknown]
  - Drug dose omission [Unknown]
  - Product quality issue [Unknown]
